FAERS Safety Report 25148381 (Version 1)
Quarter: 2025Q2

REPORT INFORMATION
  Report Type: Spontaneous
  Country: GB (occurrence: GB)
  Receive Date: 20250402
  Receipt Date: 20250402
  Transmission Date: 20250716
  Serious: Yes (Other)
  Sender: BRISTOL MYERS SQUIBB
  Company Number: None

PATIENT
  Age: 70 Year
  Sex: Female
  Weight: 85 kg

DRUGS (5)
  1. DASATINIB [Suspect]
     Active Substance: DASATINIB
     Indication: Chronic myeloid leukaemia
     Dates: start: 20150115, end: 20250324
  2. ATORVASTATIN [Concomitant]
     Active Substance: ATORVASTATIN
     Indication: Product used for unknown indication
  3. FLUOXETINE [Concomitant]
     Active Substance: FLUOXETINE HYDROCHLORIDE
     Indication: Product used for unknown indication
     Dates: start: 20200304
  4. METFORMIN [Concomitant]
     Active Substance: METFORMIN HYDROCHLORIDE
     Indication: Diabetes mellitus
  5. LINAGLIPTIN [Concomitant]
     Active Substance: LINAGLIPTIN
     Indication: Diabetes mellitus
     Dates: end: 20250122

REACTIONS (1)
  - Tubulointerstitial nephritis [Not Recovered/Not Resolved]

NARRATIVE: CASE EVENT DATE: 20250306
